FAERS Safety Report 12748432 (Version 1)
Quarter: 2016Q3

REPORT INFORMATION
  Report Type: Spontaneous
  Country: HR (occurrence: HR)
  Receive Date: 20160915
  Receipt Date: 20160915
  Transmission Date: 20161109
  Serious: Yes (Hospitalization, Other)
  Sender: FDA-Public Use
  Company Number: HR-ASTRAZENECA-2016SE96784

PATIENT
  Sex: Female

DRUGS (2)
  1. QUETIAPIN [Suspect]
     Active Substance: QUETIAPINE
     Dosage: 10.0G ONCE/SINGLE ADMINISTRATION
     Route: 048
     Dates: start: 2016, end: 2016
  2. NORMABEL [Suspect]
     Active Substance: DIAZEPAM
     Dosage: 300.0MG ONCE/SINGLE ADMINISTRATION
     Route: 048
     Dates: start: 2016, end: 2016

REACTIONS (3)
  - Suicide attempt [Unknown]
  - Intentional overdose [Unknown]
  - Sedation [Unknown]

NARRATIVE: CASE EVENT DATE: 2016
